FAERS Safety Report 9238682 (Version 1)
Quarter: 2013Q2

REPORT INFORMATION
  Report Type: Spontaneous
  Country: US (occurrence: US)
  Receive Date: 20130418
  Receipt Date: 20130418
  Transmission Date: 20140414
  Serious: No
  Sender: FDA-Public Use
  Company Number: US-B.I. PHARMACEUTICALS,INC./RIDGEFIELD-2013-BI-10220BP

PATIENT
  Sex: Male
  Weight: 91 kg

DRUGS (1)
  1. PRADAXA [Suspect]
     Indication: ATRIAL FIBRILLATION
     Dosage: 300 MG
     Route: 048
     Dates: end: 201211

REACTIONS (4)
  - Eye haemorrhage [Recovered/Resolved with Sequelae]
  - Abdominal pain upper [Recovered/Resolved]
  - Decreased appetite [Recovered/Resolved]
  - Dysgeusia [Recovered/Resolved]
